FAERS Safety Report 5673457-6 (Version None)
Quarter: 2008Q1

REPORT INFORMATION
  Report Type: 
  Country: None (occurrence: None)
  Receive Date: 20080319
  Receipt Date: 20080303
  Transmission Date: 20080703
  Serious: No
  Sender: FDA-Public Use
  Company Number: US-BAXTER-2008BH002098

PATIENT

DRUGS (1)
  1. HEPARIN SODIUM [Suspect]
     Indication: THROMBOSIS PROPHYLAXIS
     Dosage: DOSE UNIT:UNKNOWN
     Route: 010
     Dates: start: 20080116, end: 20080116

REACTIONS (4)
  - HEADACHE [None]
  - MALAISE [None]
  - ORTHOSTATIC HYPOTENSION [None]
  - TREMOR [None]
